FAERS Safety Report 13898331 (Version 2)
Quarter: 2017Q4

REPORT INFORMATION
  Report Type: Spontaneous
  Country: US (occurrence: US)
  Receive Date: 20170824
  Receipt Date: 20171101
  Transmission Date: 20180320
  Serious: Yes (Other)
  Sender: FDA-Public Use
  Company Number: US-BAYER-2017-162198

PATIENT
  Age: 26 Year
  Sex: Female
  Weight: 111.57 kg

DRUGS (3)
  1. NUVIGIL [Concomitant]
     Active Substance: ARMODAFINIL
     Route: 048
  2. TREXIMET [Concomitant]
     Active Substance: NAPROXEN SODIUM\SUMATRIPTAN SUCCINATE
  3. MIRENA [Suspect]
     Active Substance: LEVONORGESTREL
     Indication: CONTRACEPTION
     Dosage: 20 MCG/24HR, CONT
     Route: 015
     Dates: start: 20141217, end: 20170821

REACTIONS (4)
  - Device expulsion [None]
  - Uterine haemorrhage [None]
  - Abdominal pain lower [None]
  - Nausea [None]

NARRATIVE: CASE EVENT DATE: 20170821
